FAERS Safety Report 24748639 (Version 2)
Quarter: 2025Q1

REPORT INFORMATION
  Report Type: Report from Study
  Country: US (occurrence: US)
  Receive Date: 20241218
  Receipt Date: 20250218
  Transmission Date: 20250409
  Serious: Yes (Other)
  Sender: NOVARTIS
  Company Number: US-002147023-NVSC2024US194329

PATIENT

DRUGS (2)
  1. KESIMPTA [Suspect]
     Active Substance: OFATUMUMAB
     Indication: Relapsing multiple sclerosis
     Dosage: UNK, QW
     Route: 058
  2. KESIMPTA [Suspect]
     Active Substance: OFATUMUMAB
     Route: 058

REACTIONS (14)
  - Optic neuropathy [Unknown]
  - Memory impairment [Unknown]
  - Blood pressure increased [Unknown]
  - Pain [Unknown]
  - Sleep deficit [Unknown]
  - Migraine [Not Recovered/Not Resolved]
  - Arthralgia [Unknown]
  - Muscular weakness [Unknown]
  - Paraesthesia [Unknown]
  - Limb discomfort [Unknown]
  - Gait disturbance [Unknown]
  - Back pain [Unknown]
  - Electric injury [Unknown]
  - Headache [Unknown]
